FAERS Safety Report 6903225-6 (Version None)
Quarter: 2010Q3

REPORT INFORMATION
  Report Type: 
  Country: None (occurrence: None)
  Receive Date: 20100803
  Receipt Date: 20080725
  Transmission Date: 20110219
  Serious: No
  Sender: FDA-Public Use
  Company Number: US-PFIZER INC-2008063560

PATIENT
  Sex: Female
  Weight: 45.454 kg

DRUGS (9)
  1. LYRICA [Suspect]
     Indication: FIBROMYALGIA
     Dates: start: 20070101
  2. LYRICA [Suspect]
     Indication: PROCEDURAL PAIN
  3. OXYCONTIN [Concomitant]
  4. OXYCODONE [Concomitant]
  5. ZOLOFT [Concomitant]
  6. SYNTHROID [Concomitant]
  7. XANAX [Concomitant]
  8. PEPSIN [Concomitant]
  9. POTASSIUM [Concomitant]

REACTIONS (7)
  - ANAEMIA [None]
  - BLOOD POTASSIUM DECREASED [None]
  - FEELING GUILTY [None]
  - SPEECH DISORDER [None]
  - UNEVALUABLE EVENT [None]
  - VISION BLURRED [None]
  - VISUAL IMPAIRMENT [None]
